FAERS Safety Report 4507530-2 (Version None)
Quarter: 2004Q4

REPORT INFORMATION
  Report Type: 
  Country: None (occurrence: None)
  Receive Date: 20041118
  Receipt Date: 20041105
  Transmission Date: 20050328
  Serious: Yes (Other)
  Sender: FDA-Public Use
  Company Number: 2004088613

PATIENT
  Age: 67 Year
  Sex: Male

DRUGS (3)
  1. MINIPRESS [Suspect]
     Indication: HYPERTENSION
     Dosage: (2 IN 1 D), ORAL
     Route: 048
     Dates: start: 20041001
  2. DYAZIDE [Concomitant]
  3. CLONIDINE [Concomitant]

REACTIONS (1)
  - THROMBOSIS [None]
